FAERS Safety Report 8165289-4 (Version None)
Quarter: 2012Q1

REPORT INFORMATION
  Report Type: 
  Country: None (occurrence: None)
  Receive Date: 20120223
  Receipt Date: 20120223
  Transmission Date: 20120608
  Serious: Yes (Life-Threatening)
  Sender: FDA-Public Use
  Company Number: None

PATIENT
  Sex: Female

DRUGS (1)
  1. NYSTATIN [Suspect]
     Indication: BLOOD CHOLESTEROL
     Dosage: 500 MG ONE TAB BID PO
     Route: 048
     Dates: start: 20111231

REACTIONS (7)
  - FALL [None]
  - INFECTION [None]
  - CHILLS [None]
  - DIZZINESS [None]
  - LOSS OF CONSCIOUSNESS [None]
  - RASH GENERALISED [None]
  - FAECES DISCOLOURED [None]
